FAERS Safety Report 14480863 (Version 2)
Quarter: 2018Q2

REPORT INFORMATION
  Report Type: Spontaneous
  Country: PT (occurrence: PT)
  Receive Date: 20180202
  Receipt Date: 20180418
  Transmission Date: 20180711
  Serious: Yes (Other)
  Sender: FDA-Public Use
  Company Number: PT-TEVA-2018-PT-850268

PATIENT
  Age: 41 Year
  Sex: Male

DRUGS (2)
  1. IBUPROFEN. [Concomitant]
     Active Substance: IBUPROFEN
     Indication: NASOPHARYNGITIS
     Dosage: IN SOS
     Route: 048
     Dates: start: 201712
  2. COPAXONE [Suspect]
     Active Substance: GLATIRAMER ACETATE
     Indication: MULTIPLE SCLEROSIS
     Dosage: MANAGEMENT BREAK ON WEEKENDS
     Route: 058
     Dates: start: 201706

REACTIONS (7)
  - Presyncope [Recovering/Resolving]
  - Nausea [Recovering/Resolving]
  - Anxiety [Recovering/Resolving]
  - Asthenia [Recovering/Resolving]
  - Blood pressure decreased [Recovering/Resolving]
  - Dyspnoea [Recovering/Resolving]
  - Malaise [Recovering/Resolving]
